FAERS Safety Report 6645097-3 (Version None)
Quarter: 2010Q1

REPORT INFORMATION
  Report Type: 
  Country: None (occurrence: None)
  Receive Date: 20100322
  Receipt Date: 20100311
  Transmission Date: 20100710
  Serious: Yes (Other)
  Sender: FDA-Public Use
  Company Number: JP-PFIZER INC-2010031615

PATIENT
  Age: 78 Year
  Sex: Male

DRUGS (4)
  1. DETRUSITOL [Suspect]
     Dosage: 4 MG, UNK
     Route: 048
     Dates: start: 20091214
  2. ODYNE [Suspect]
     Route: 048
  3. OPALMON [Suspect]
     Route: 048
  4. INSULIN [Concomitant]
     Dosage: UNK

REACTIONS (2)
  - AMNESIA [None]
  - MALAISE [None]
